FAERS Safety Report 6781899-0 (Version None)
Quarter: 2010Q2

REPORT INFORMATION
  Report Type: 
  Country: None (occurrence: None)
  Receive Date: 20100621
  Receipt Date: 20100611
  Transmission Date: 20101027
  Serious: Yes (Disabling)
  Sender: FDA-Public Use
  Company Number: GXKR2010GB06492

PATIENT
  Age: 73 Year
  Sex: Male

DRUGS (7)
  1. MYCOPHENOLATE MOFETIL [Suspect]
     Indication: RHEUMATOID ARTHRITIS
     Dosage: 500 MG, TID
     Route: 048
     Dates: start: 20090121, end: 20100513
  2. ALENDRONIC ACID [Concomitant]
     Indication: BONE DENSITY INCREASED
     Dosage: 70 MG, QW
     Route: 048
     Dates: start: 20020425
  3. ACETYLSALICYLIC ACID [Concomitant]
     Indication: PERIPHERAL VASCULAR DISORDER
     Dosage: 75 MG, UNK
     Route: 048
     Dates: start: 20100312
  4. DOXAZOSIN MESYLATE [Concomitant]
     Indication: HYPOTENSION
     Dosage: 10 MG, UNK
     Route: 048
     Dates: start: 20090312
  5. LANSOPRAZOLE [Concomitant]
     Indication: DYSPEPSIA
     Dosage: 30 MG, UNK
     Route: 048
     Dates: start: 20060606
  6. PREDNISOLONE [Concomitant]
     Indication: RHEUMATOID ARTHRITIS
     Dosage: 10 MG, UNK
     Route: 048
     Dates: start: 20080101
  7. SIMVASTATIN [Concomitant]
     Indication: HYPERCHOLESTEROLAEMIA
     Dosage: 20 MG, UNK
     Route: 048
     Dates: start: 20090312

REACTIONS (1)
  - IMPAIRED HEALING [None]
